FAERS Safety Report 15894026 (Version 1)
Quarter: 2019Q1

REPORT INFORMATION
  Report Type: Spontaneous
  Country: US (occurrence: US)
  Receive Date: 20190130
  Receipt Date: 20190130
  Transmission Date: 20190417
  Serious: Yes (Other)
  Sender: FDA-Public Use
  Company Number: None

PATIENT
  Age: 49 Year
  Sex: Female
  Weight: 82.35 kg

DRUGS (1)
  1. ABILIFY MAINTENA [Suspect]
     Active Substance: ARIPIPRAZOLE
     Dosage: ?          OTHER FREQUENCY:MONTHLY;?
     Route: 030
     Dates: start: 20171116, end: 20171228

REACTIONS (9)
  - Anxiety [None]
  - Amenorrhoea [None]
  - Agitation [None]
  - Akathisia [None]
  - Breast discharge [None]
  - Weight increased [None]
  - Hyperphagia [None]
  - Gambling [None]
  - Drug dependence [None]

NARRATIVE: CASE EVENT DATE: 20171116
